FAERS Safety Report 4861263-1 (Version None)
Quarter: 2005Q4

REPORT INFORMATION
  Report Type: 
  Country: None (occurrence: None)
  Receive Date: 20051216
  Receipt Date: 20051122
  Transmission Date: 20060501
  Serious: Yes (Hospitalization, Other)
  Sender: FDA-Public Use
  Company Number: 200514160GDS

PATIENT
  Age: 28 Year
  Sex: Female

DRUGS (4)
  1. NIFEDIPINE [Suspect]
     Dosage: 60 MG, TOTAL DAILY,
  2. ATENOLOL [Suspect]
     Indication: HYPERTENSION
     Dosage: 50 MG, TOTAL DAILY,
  3. HYDROXYCHLOROQUINE SULFATE [Suspect]
     Dosage: 200 MG, TOTAL DAILY,
  4. RAMIPRIL [Suspect]
     Indication: HYPERTENSION
     Dosage: 50 MG, TOTAL DAILY,

REACTIONS (5)
  - CAESAREAN SECTION [None]
  - DRUG EXPOSURE DURING PREGNANCY [None]
  - HYPERTENSION [None]
  - PREMATURE LABOUR [None]
  - RENAL IMPAIRMENT [None]
